FAERS Safety Report 16441001 (Version 2)
Quarter: 2022Q3

REPORT INFORMATION
  Report Type: Spontaneous
  Country: US (occurrence: US)
  Receive Date: 20190617
  Receipt Date: 20220819
  Transmission Date: 20221027
  Serious: Yes (Disabling, Other)
  Sender: FDA-Public Use
  Company Number: US-TEVA-2019-US-1062744

PATIENT
  Age: 63 Year
  Sex: Female
  Weight: 83.9 kg

DRUGS (16)
  1. DOCETAXEL [Suspect]
     Active Substance: DOCETAXEL
     Indication: HER2 negative breast cancer
     Dosage: 75 MG/M2, NUMBER OF CYCLES - 06, FREQUENCY - EVERY THREE WEEK
     Route: 042
     Dates: start: 20130715, end: 20131107
  2. DOCETAXEL [Suspect]
     Active Substance: DOCETAXEL
     Indication: Hormone receptor positive breast cancer
  3. CARBOPLATIN [Suspect]
     Active Substance: CARBOPLATIN
     Indication: HER2 negative breast cancer
     Dosage: NUMBER OF CYCLES - 01
     Route: 042
     Dates: start: 20130715, end: 20130715
  4. CARBOPLATIN [Suspect]
     Active Substance: CARBOPLATIN
     Indication: Hormone receptor positive breast cancer
     Dosage: NUMBER OF CYCLES - 01
     Route: 042
     Dates: start: 20130808, end: 20130808
  5. CARBOPLATIN [Suspect]
     Active Substance: CARBOPLATIN
     Dosage: NUMBER OF CYCLES - 02, EVERY 3 WEEKS
     Route: 042
     Dates: start: 20130828, end: 20130919
  6. CARBOPLATIN [Suspect]
     Active Substance: CARBOPLATIN
     Dosage: NUMBER OF CYCLES - 01
     Route: 042
     Dates: start: 20131017, end: 20131017
  7. CARBOPLATIN [Suspect]
     Active Substance: CARBOPLATIN
     Dosage: NUMBER OF CYCLES - 01
     Route: 042
     Dates: start: 20131107, end: 20131107
  8. HERCEPTIN [Suspect]
     Active Substance: TRASTUZUMAB
     Indication: HER2 negative breast cancer
     Dosage: NUMBER OF CYCLES: 1
     Route: 042
     Dates: start: 20130715, end: 20130715
  9. HERCEPTIN [Suspect]
     Active Substance: TRASTUZUMAB
     Indication: Hormone receptor positive breast cancer
     Dosage: NUMBER OF CYCLES: 15, ONCE A WEEK
     Route: 042
     Dates: start: 20130808, end: 20131121
  10. HERCEPTIN [Suspect]
     Active Substance: TRASTUZUMAB
     Dosage: NUMBER OF CYCLES: 2, ONCE A WEEK
     Route: 042
     Dates: start: 20131205, end: 20131212
  11. LEVOTHYROXINE [Concomitant]
     Active Substance: LEVOTHYROXINE
     Indication: Product used for unknown indication
     Route: 065
     Dates: start: 2000
  12. SIMVASTATIN [Concomitant]
     Active Substance: SIMVASTATIN
     Indication: Product used for unknown indication
     Route: 065
     Dates: start: 2008
  13. SERTRALINE [Concomitant]
     Active Substance: SERTRALINE HYDROCHLORIDE
     Indication: Product used for unknown indication
     Route: 065
     Dates: start: 2008
  14. TIZANIDINE [Concomitant]
     Active Substance: TIZANIDINE
     Indication: Product used for unknown indication
     Route: 065
  15. NEULASTA [Concomitant]
     Active Substance: PEGFILGRASTIM
     Indication: HER2 negative breast cancer
     Dosage: NUMBER OF CYCLES: 5, EVERY THREE WEEKS
     Route: 058
     Dates: start: 20130809, end: 20131108
  16. NEULASTA [Concomitant]
     Active Substance: PEGFILGRASTIM
     Indication: Hormone receptor positive breast cancer

REACTIONS (26)
  - Alopecia totalis [Not Recovered/Not Resolved]
  - Alopecia areata [Not Recovered/Not Resolved]
  - Madarosis [Not Recovered/Not Resolved]
  - Diffuse alopecia [Not Recovered/Not Resolved]
  - Neuropathy peripheral [Unknown]
  - Thrombocytopenia [Unknown]
  - Hair texture abnormal [Not Recovered/Not Resolved]
  - Hair colour changes [Not Recovered/Not Resolved]
  - Feeling abnormal [Unknown]
  - Blood potassium decreased [Recovering/Resolving]
  - Poor quality sleep [Unknown]
  - Asthenia [Recovering/Resolving]
  - Nausea [Recovered/Resolved]
  - Fatigue [Unknown]
  - Decreased appetite [Unknown]
  - Abdominal discomfort [Unknown]
  - Dyspnoea exertional [Recovering/Resolving]
  - Muscle spasms [Unknown]
  - Anaemia [Unknown]
  - Constipation [Recovered/Resolved]
  - Heart rate increased [Unknown]
  - Paraesthesia [Unknown]
  - Pain in extremity [Unknown]
  - Taste disorder [Unknown]
  - Epistaxis [Unknown]
  - Myalgia [Unknown]

NARRATIVE: CASE EVENT DATE: 20130801
